FAERS Safety Report 19469904 (Version 1)
Quarter: 2021Q2

REPORT INFORMATION
  Report Type: Spontaneous
  Country: AU (occurrence: AU)
  Receive Date: 20210629
  Receipt Date: 20210629
  Transmission Date: 20210717
  Serious: Yes (Other)
  Sender: FDA-Public Use
  Company Number: AU-SA-2021SA147531

PATIENT
  Age: 60 Year
  Sex: Female

DRUGS (3)
  1. DUPILUMAB [Suspect]
     Active Substance: DUPILUMAB
     Indication: ASTHMA
     Dosage: 300 MG, QOW
     Route: 058
     Dates: start: 20210311, end: 20210428
  2. BREO ELLIPTA [Concomitant]
     Active Substance: FLUTICASONE FUROATE\VILANTEROL TRIFENATATE
     Dosage: UNK UNK, QD
     Route: 055
  3. ALVESCO [Concomitant]
     Active Substance: CICLESONIDE
     Dosage: 160 MG

REACTIONS (9)
  - Unevaluable event [Unknown]
  - Product use issue [Unknown]
  - Erythema [Recovered/Resolved]
  - Drug ineffective [Unknown]
  - Swelling face [Recovered/Resolved]
  - Exfoliative rash [Recovered/Resolved]
  - Rash erythematous [Recovered/Resolved]
  - Condition aggravated [Recovered/Resolved]
  - Flushing [Recovered/Resolved]

NARRATIVE: CASE EVENT DATE: 20210311
